FAERS Safety Report 12473255 (Version 5)
Quarter: 2018Q3

REPORT INFORMATION
  Report Type: Spontaneous
  Country: BE (occurrence: BE)
  Receive Date: 20160616
  Receipt Date: 20180813
  Transmission Date: 20181010
  Serious: Yes (Other)
  Sender: FDA-Public Use
  Company Number: BE-PFIZER INC-2016299669

PATIENT
  Age: 37 Year
  Sex: Female

DRUGS (1)
  1. SERLAIN [Suspect]
     Active Substance: SERTRALINE HYDROCHLORIDE
     Dosage: 50 MG, DAILY

REACTIONS (3)
  - Haemorrhage [Recovered/Resolved]
  - Spontaneous haematoma [Recovered/Resolved]
  - Platelet disorder [Recovered/Resolved]
